FAERS Safety Report 16361406 (Version 1)
Quarter: 2019Q2

REPORT INFORMATION
  Report Type: Other
  Country: SK (occurrence: SK)
  Receive Date: 20190528
  Receipt Date: 20190528
  Transmission Date: 20190711
  Serious: Yes (Hospitalization)
  Sender: FDA-Public Use
  Company Number: SK-TOPROL ACQUISITION LLC-2019-TOP-000157

PATIENT
  Age: 60 Year
  Sex: Female
  Weight: 64 kg

DRUGS (2)
  1. METOPROLOL SUCCINATE. [Suspect]
     Active Substance: METOPROLOL SUCCINATE
     Indication: HYPERTENSION
     Dosage: 100 MG, QAM
     Route: 048
  2. COPRENESSA [Suspect]
     Active Substance: INDAPAMIDE\PERINDOPRIL ERBUMINE
     Indication: HYPERTENSION
     Dosage: 1 DF, QAM
     Route: 048

REACTIONS (2)
  - Face oedema [Recovered/Resolved]
  - Rash macular [Recovered/Resolved]
